FAERS Safety Report 6452872-7 (Version None)
Quarter: 2009Q4

REPORT INFORMATION
  Report Type: 
  Country: None (occurrence: None)
  Receive Date: 20091116
  Receipt Date: 20091105
  Transmission Date: 20100525
  Serious: Yes (Hospitalization, Other)
  Sender: FDA-Public Use
  Company Number: ADR50472009

PATIENT
  Age: 61 Year
  Sex: Female

DRUGS (6)
  1. ALENDRONATE SODIUM [Suspect]
     Indication: OSTEOPOROSIS
  2. IBANDRONATE [Concomitant]
  3. PREDNISONE [Concomitant]
  4. ESOMEPRAZOLE [Concomitant]
  5. AZATHIOPRINE [Concomitant]
  6. CYCLOSPORINE [Concomitant]

REACTIONS (2)
  - FALL [None]
  - FEMUR FRACTURE [None]
